FAERS Safety Report 6762218-2 (Version None)
Quarter: 2010Q2

REPORT INFORMATION
  Report Type: 
  Country: None (occurrence: None)
  Receive Date: 20100609
  Receipt Date: 20100526
  Transmission Date: 20101027
  Serious: Yes (Other)
  Sender: FDA-Public Use
  Company Number: PHHY2010CA17356

PATIENT
  Sex: Male

DRUGS (2)
  1. ZOMETA [Suspect]
     Indication: RENAL CELL CARCINOMA
     Dosage: 4 MG EVERY 4 WEEKS
     Route: 042
     Dates: start: 20100225, end: 20100225
  2. SUTENT [Concomitant]
     Dosage: UNK

REACTIONS (14)
  - BLOOD ALBUMIN DECREASED [None]
  - BLOOD CALCIUM DECREASED [None]
  - BLOOD SODIUM DECREASED [None]
  - BLOOD THYROID STIMULATING HORMONE INCREASED [None]
  - BLOOD UREA DECREASED [None]
  - HAEMATOCRIT DECREASED [None]
  - HAEMOGLOBIN DECREASED [None]
  - LYMPHOCYTE COUNT DECREASED [None]
  - MEAN CELL HAEMOGLOBIN CONCENTRATION DECREASED [None]
  - NEUTROPHIL COUNT DECREASED [None]
  - PLATELET COUNT DECREASED [None]
  - RED BLOOD CELL COUNT DECREASED [None]
  - RED CELL DISTRIBUTION WIDTH INCREASED [None]
  - WHITE BLOOD CELL COUNT DECREASED [None]
